FAERS Safety Report 11797240 (Version 1)
Quarter: 2015Q4

REPORT INFORMATION
  Report Type: Spontaneous
  Country: US (occurrence: US)
  Receive Date: 20151203
  Receipt Date: 20151203
  Transmission Date: 20160305
  Serious: Yes (Other)
  Sender: FDA-Public Use
  Company Number: US-INDIVIOR LIMITED-INDV-085899-2015

PATIENT
  Age: 61 Year
  Sex: Male

DRUGS (3)
  1. BUPRENORPHINE/NALOXONE GENERIC [Suspect]
     Active Substance: BUPRENORPHINE\NALOXONE
     Indication: DRUG DEPENDENCE
     Dosage: 4 MG, BID
     Route: 060
     Dates: start: 201510
  2. SUBOXONE [Suspect]
     Active Substance: BUPRENORPHINE HYDROCHLORIDE\NALOXONE HYDROCHLORIDE
     Indication: DRUG DEPENDENCE
     Dosage: 4 MG, DAILY FOR A WEEK
     Route: 060
     Dates: start: 201510, end: 201510
  3. PROZAC [Concomitant]
     Active Substance: FLUOXETINE HYDROCHLORIDE
     Indication: PERIPHERAL NERVE INJURY
     Dosage: UNKNOWN, DAILY
     Route: 048

REACTIONS (6)
  - Hallucination [Not Recovered/Not Resolved]
  - Product preparation error [Not Recovered/Not Resolved]
  - Sleep talking [Not Recovered/Not Resolved]
  - Agitation [Not Recovered/Not Resolved]
  - Hypopnoea [Not Recovered/Not Resolved]
  - Product use issue [Not Recovered/Not Resolved]

NARRATIVE: CASE EVENT DATE: 201510
